FAERS Safety Report 5331921-3 (Version None)
Quarter: 2007Q2

REPORT INFORMATION
  Report Type: 
  Country: None (occurrence: None)
  Receive Date: 20070521
  Receipt Date: 20070515
  Transmission Date: 20071010
  Serious: Yes (Hospitalization)
  Sender: FDA-Public Use
  Company Number: 2007BI007991

PATIENT
  Age: 45 Year
  Sex: Male
  Weight: 85.7298 kg

DRUGS (15)
  1. NATALIZUMAB [Suspect]
     Indication: MULTIPLE SCLEROSIS
     Dosage: 300 MG;QM;IV
     Route: 042
     Dates: start: 20061114
  2. ZANAFLEX [Concomitant]
  3. LYRICA [Concomitant]
  4. VALIUM [Concomitant]
  5. REMERON [Concomitant]
  6. LEXAPRO [Concomitant]
  7. SINGULAIR [Concomitant]
  8. PROVIGIL [Concomitant]
  9. MSIR [Concomitant]
  10. LUNESTA [Concomitant]
  11. LASIX [Concomitant]
  12. ADVAIR DISKUS 100/50 [Concomitant]
  13. DUONEB [Concomitant]
  14. AVANZA [Concomitant]
  15. BACLOFEN [Concomitant]

REACTIONS (1)
  - CELLULITIS [None]
